FAERS Safety Report 8487803-1 (Version None)
Quarter: 2012Q2

REPORT INFORMATION
  Report Type: 
  Country: None (occurrence: None)
  Receive Date: 20120402
  Receipt Date: 20110418
  Transmission Date: 20120825
  Serious: Yes (Other)
  Sender: FDA-Public Use
  Company Number: PHHY2010US73035

PATIENT
  Sex: Male

DRUGS (4)
  1. LISINOPRIL [Concomitant]
  2. METOPROLOL TARTRATE [Concomitant]
  3. EXFORGE [Suspect]
     Indication: HYPERTENSION
     Dosage: 320/10 MG, ONE DAILY, ORAL
     Route: 048
     Dates: start: 20090301, end: 20101001
  4. LASIX (FUROSEMIDE0 [Concomitant]

REACTIONS (1)
  - GINGIVAL HYPERPLASIA [None]
